FAERS Safety Report 8534370-X (Version None)
Quarter: 2012Q3

REPORT INFORMATION
  Report Type: 
  Country: None (occurrence: None)
  Receive Date: 20120724
  Receipt Date: 20120718
  Transmission Date: 20120928
  Serious: Yes (Other)
  Sender: FDA-Public Use
  Company Number: PHHY2012FR041322

PATIENT
  Sex: Female
  Weight: 68 kg

DRUGS (2)
  1. GILENYA [Suspect]
     Dosage: UNK UKN, UNK
     Route: 048
     Dates: start: 20120601
  2. GILENYA [Suspect]
     Indication: MULTIPLE SCLEROSIS
     Dosage: 0.5 MG, QD
     Route: 048
     Dates: start: 20120419, end: 20120502

REACTIONS (4)
  - C-REACTIVE PROTEIN INCREASED [None]
  - DIARRHOEA HAEMORRHAGIC [None]
  - HYPERTHERMIA [None]
  - PROCTOCOLITIS [None]
